FAERS Safety Report 7328232-3 (Version None)
Quarter: 2011Q1

REPORT INFORMATION
  Report Type: 
  Country: None (occurrence: None)
  Receive Date: 20110224
  Receipt Date: 20110224
  Transmission Date: 20110831
  Serious: No
  Sender: FDA-Public Use
  Company Number: None

PATIENT
  Sex: Female

DRUGS (1)
  1. LOSARTAN POTASSIUM [Suspect]
     Indication: HYPERTENSION
     Dosage: ONE TAB PO DAILY
     Route: 048
     Dates: start: 20090801, end: 20100601

REACTIONS (2)
  - PRODUCT SUBSTITUTION ISSUE [None]
  - PRURITUS [None]
